FAERS Safety Report 16627629 (Version 1)
Quarter: 2019Q3

REPORT INFORMATION
  Report Type: Spontaneous
  Country: FR (occurrence: FR)
  Receive Date: 20190724
  Receipt Date: 20190724
  Transmission Date: 20191004
  Serious: Yes (Other)
  Sender: FDA-Public Use
  Company Number: FR-JNJFOC-20190726380

PATIENT
  Age: 67 Year
  Sex: Male

DRUGS (9)
  1. DESLORATADINE MYLAN [Suspect]
     Active Substance: DESLORATADINE
     Indication: RHINITIS
     Route: 048
     Dates: start: 20190426, end: 20190510
  2. SODIUM ALGINATE W/SODIUM BICARBONATE [Suspect]
     Active Substance: SODIUM ALGINATE\SODIUM BICARBONATE
     Indication: GASTROOESOPHAGEAL REFLUX DISEASE
     Route: 048
     Dates: start: 20190406
  3. DOLIPRANE [Concomitant]
     Active Substance: ACETAMINOPHEN
     Indication: PAIN
     Route: 048
  4. LEVOFLOXACIN. [Suspect]
     Active Substance: LEVOFLOXACIN
     Indication: EPIDIDYMITIS
     Route: 048
     Dates: start: 20190405, end: 20190503
  5. TRAMADOL HYDROCHLORIDE. [Suspect]
     Active Substance: TRAMADOL HYDROCHLORIDE
     Indication: PAIN
     Route: 048
     Dates: start: 20190410
  6. LANSOPRAZOLE. [Suspect]
     Active Substance: LANSOPRAZOLE
     Indication: PROPHYLAXIS AGAINST GASTROINTESTINAL ULCER
     Dosage: 15 MG, 1/DAY
     Route: 048
     Dates: start: 20190410
  7. LOVENOX [Suspect]
     Active Substance: ENOXAPARIN SODIUM
     Indication: THROMBOSIS PROPHYLAXIS
     Route: 058
     Dates: start: 20190405
  8. RIFADINE                           /00146901/ [Suspect]
     Active Substance: RIFAMPIN
     Indication: EPIDIDYMITIS
     Route: 048
     Dates: start: 20190405
  9. HAVLANE [Concomitant]
     Active Substance: LOPRAZOLAM
     Indication: SLEEP DISORDER
     Route: 048

REACTIONS (1)
  - Rotator cuff syndrome [Recovering/Resolving]

NARRATIVE: CASE EVENT DATE: 20190503
